FAERS Safety Report 20150711 (Version 2)
Quarter: 2021Q4

REPORT INFORMATION
  Report Type: Spontaneous
  Country: JP (occurrence: JP)
  Receive Date: 20211206
  Receipt Date: 20211210
  Transmission Date: 20220303
  Serious: Yes (Other)
  Sender: FDA-Public Use
  Company Number: JP-GLAXOSMITHKLINE-JP2021JPN248773

PATIENT
  Age: 20 Year
  Sex: Female

DRUGS (3)
  1. BENZOYL PEROXIDE\CLINDAMYCIN PHOSPHATE [Suspect]
     Active Substance: BENZOYL PEROXIDE\CLINDAMYCIN PHOSPHATE
     Indication: Acne
     Dosage: QUANTUM PLACET, UNK, QD
     Route: 061
     Dates: start: 20211125, end: 20211202
  2. HIRUDOID LOTION [Concomitant]
     Indication: Dry skin prophylaxis
     Dosage: UNK UNK, QD
     Route: 050
  3. BILANOA TABLET [Concomitant]
     Dosage: 20 MG
     Route: 048

REACTIONS (1)
  - Haematochezia [Recovered/Resolved]

NARRATIVE: CASE EVENT DATE: 20211130
